FAERS Safety Report 8568482 (Version 3)
Quarter: 2012Q4

REPORT INFORMATION
  Report Type: 
  Country: US (occurrence: US)
  Receive Date: 20120518
  Receipt Date: 20121211
  Transmission Date: 20130627
  Serious: Yes (Hospitalization)
  Sender: FDA-Public Use
  Company Number: US-BAYER-2012-046492

PATIENT
  Age: 39 Year
  Sex: Female

DRUGS (4)
  1. BEYAZ [Suspect]
     Indication: MENORRHAGIA
     Dosage: 1 DF, QD
     Route: 048
     Dates: start: 20110927, end: 201111
  2. BEYAZ [Suspect]
     Indication: MENSTRUAL CYCLE MANAGEMENT
  3. ALBUTEROL [Concomitant]
  4. YAZ [Suspect]
     Indication: UTERINE BLEEDING

REACTIONS (3)
  - Myocardial infarction [Recovered/Resolved]
  - Intracardiac thrombus [Recovered/Resolved]
  - Off label use [None]
